FAERS Safety Report 9733029 (Version 1)
Quarter: 2013Q4

REPORT INFORMATION
  Report Type: Spontaneous
  Country: US (occurrence: None)
  Receive Date: 20131204
  Receipt Date: 20131204
  Transmission Date: 20140711
  Serious: Yes (Other)
  Sender: FDA-Public Use
  Company Number: None

PATIENT
  Age: 85 Year
  Sex: Male
  Weight: 77.11 kg

DRUGS (6)
  1. MYRBETRIQ [Suspect]
     Indication: HYPERTONIC BLADDER
     Route: 048
     Dates: start: 20131121, end: 20131128
  2. MYRBETRIQ [Suspect]
     Indication: INCONTINENCE
     Route: 048
     Dates: start: 20131121, end: 20131128
  3. MYRBETRIQ [Suspect]
     Indication: NOCTURIA
     Route: 048
     Dates: start: 20131121, end: 20131128
  4. LISINOPRIL [Concomitant]
  5. BABY ASPIRIN [Concomitant]
  6. MULTIVITAMIN A-Z [Concomitant]

REACTIONS (4)
  - Headache [None]
  - Pruritus [None]
  - Blood pressure increased [None]
  - Drug ineffective [None]
